FAERS Safety Report 6298003-8 (Version None)
Quarter: 2009Q3

REPORT INFORMATION
  Report Type: 
  Country: None (occurrence: None)
  Receive Date: 20090805
  Receipt Date: 20090730
  Transmission Date: 20100115
  Serious: Yes (Other)
  Sender: FDA-Public Use
  Company Number: B0587316A

PATIENT
  Sex: Female
  Weight: 50 kg

DRUGS (1)
  1. PAROXETINE [Suspect]
     Indication: AFFECTIVE DISORDER
     Dosage: 60MG PER DAY
     Route: 048

REACTIONS (2)
  - APHASIA [None]
  - DRUG WITHDRAWAL SYNDROME [None]
